FAERS Safety Report 20699709 (Version 3)
Quarter: 2022Q2

REPORT INFORMATION
  Report Type: Spontaneous
  Country: NL (occurrence: NL)
  Receive Date: 20220412
  Receipt Date: 20220531
  Transmission Date: 20220721
  Serious: Yes (Other)
  Sender: FDA-Public Use
  Company Number: NL-BRACCO-2022NL01263

PATIENT
  Age: 34 Year

DRUGS (3)
  1. PROHANCE [Suspect]
     Active Substance: GADOTERIDOL
     Indication: Liver disorder
     Dosage: AT HALF DOSE FOR THE LIVER
     Route: 065
     Dates: start: 20220221, end: 20220221
  2. PROHANCE [Suspect]
     Active Substance: GADOTERIDOL
     Indication: Magnetic resonance imaging
  3. PRIMOVIST [Suspect]
     Active Substance: GADOXETATE DISODIUM
     Indication: Magnetic resonance imaging
     Dosage: STANDARD DOSE
     Dates: start: 20220221, end: 20220221

REACTIONS (2)
  - Chorioretinitis [Recovering/Resolving]
  - Serpiginous choroiditis [Recovering/Resolving]

NARRATIVE: CASE EVENT DATE: 20220316
